FAERS Safety Report 13451969 (Version 2)
Quarter: 2017Q3

REPORT INFORMATION
  Report Type: Report from Study
  Country: DE (occurrence: DE)
  Receive Date: 20170418
  Receipt Date: 20170811
  Transmission Date: 20171127
  Serious: Yes (Hospitalization, Disabling)
  Sender: FDA-Public Use
  Company Number: PHHY2017DE043455

PATIENT
  Age: 61 Year
  Sex: Female
  Weight: 70 kg

DRUGS (3)
  1. ENTRESTO [Suspect]
     Active Substance: SACUBITRIL\VALSARTAN
     Indication: CARDIAC FAILURE
     Dosage: 50 MG (24/26 MG), BID
     Route: 048
     Dates: start: 20170113, end: 20170131
  2. ENTRESTO [Suspect]
     Active Substance: SACUBITRIL\VALSARTAN
     Dosage: (24/26MG), UNK
     Route: 048
  3. ENTRESTO [Suspect]
     Active Substance: SACUBITRIL\VALSARTAN
     Indication: CONGESTIVE CARDIOMYOPATHY
     Dosage: 0.5 (24/26 MG) DF, BID
     Route: 048
     Dates: start: 20170220, end: 20170619

REACTIONS (11)
  - Wrong technique in product usage process [Unknown]
  - Renal function test abnormal [Recovering/Resolving]
  - Malaise [Recovering/Resolving]
  - Cardiac failure [Recovering/Resolving]
  - Urinary tract infection [Recovered/Resolved with Sequelae]
  - Prescribed underdose [Unknown]
  - Chronic kidney disease [Recovered/Resolved with Sequelae]
  - Infection [Recovered/Resolved]
  - Dyspnoea [Recovering/Resolving]
  - Asthenia [Recovering/Resolving]
  - Acute kidney injury [Recovering/Resolving]

NARRATIVE: CASE EVENT DATE: 20170210
